FAERS Safety Report 9252074 (Version 1)
Quarter: 2013Q2

REPORT INFORMATION
  Report Type: Spontaneous
  Country: GB (occurrence: GB)
  Receive Date: 20130424
  Receipt Date: 20130424
  Transmission Date: 20140414
  Serious: Yes (Hospitalization)
  Sender: FDA-Public Use
  Company Number: PHFR2013GB002280

PATIENT
  Age: 75 Year
  Sex: Female

DRUGS (2)
  1. DICLOFENAC [Suspect]
     Dosage: UNK UKN, UNK
     Dates: start: 20130406, end: 20130407
  2. METFORMIN [Suspect]
     Dosage: UNK UKN, UNK
     Dates: start: 20130406, end: 20130407

REACTIONS (1)
  - Renal failure acute [Recovering/Resolving]
